FAERS Safety Report 17545657 (Version 1)
Quarter: 2020Q1

REPORT INFORMATION
  Report Type: Spontaneous
  Country: US (occurrence: US)
  Receive Date: 20200315
  Receipt Date: 20200315
  Transmission Date: 20200409
  Serious: Yes (Death)
  Sender: FDA-Public Use
  Company Number: None

PATIENT
  Age: 66 Year
  Sex: Male
  Weight: 82.35 kg

DRUGS (4)
  1. ONDANSENTRON [Concomitant]
  2. ACYCLOVIR. [Concomitant]
     Active Substance: ACYCLOVIR
  3. PEPCID [Concomitant]
     Active Substance: FAMOTIDINE
  4. IBRUTINIB [Suspect]
     Active Substance: IBRUTINIB
     Indication: CHRONIC LYMPHOCYTIC LEUKAEMIA
     Route: 048
     Dates: start: 20190806, end: 20200229

REACTIONS (4)
  - Hypertension [None]
  - Cardiac arrest [None]
  - Ventricular fibrillation [None]
  - Brain injury [None]

NARRATIVE: CASE EVENT DATE: 20200305
